FAERS Safety Report 7935080-X (Version None)
Quarter: 2011Q4

REPORT INFORMATION
  Report Type: 
  Country: None (occurrence: None)
  Receive Date: 20111122
  Receipt Date: 20110825
  Transmission Date: 20120403
  Serious: No
  Sender: FDA-Public Use
  Company Number: US-BAYER-2011-082642

PATIENT

DRUGS (3)
  1. MUSCLE RELAXANTS [Concomitant]
     Dosage: 1 DF, UNK
  2. TYLENOL REGULAR [Concomitant]
     Dosage: 2 DF, UNK
  3. ALEVE (CAPLET) [Suspect]
     Dosage: 1 DF, UNK

REACTIONS (2)
  - DRUG INEFFECTIVE [None]
  - FEELING ABNORMAL [None]
